FAERS Safety Report 9916121 (Version 1)
Quarter: 2014Q1

REPORT INFORMATION
  Report Type: Spontaneous
  Country: JP (occurrence: None)
  Receive Date: 20140219
  Receipt Date: 20140219
  Transmission Date: 20141002
  Serious: Yes (Hospitalization, Other)
  Sender: FDA-Public Use
  Company Number: DAV-AE-ALP-14-05

PATIENT
  Age: 46 Year
  Sex: Male

DRUGS (4)
  1. ALPRAZOLAM [Suspect]
     Indication: OVERDOSE
  2. EPERISONE 550MG [Concomitant]
  3. PREGABALIN 975MG [Concomitant]
  4. PAROXETINE [Concomitant]

REACTIONS (4)
  - Electrocardiogram QT prolonged [None]
  - Overdose [None]
  - Drug screen positive [None]
  - Blood pressure diastolic increased [None]
